FAERS Safety Report 9623135 (Version 5)
Quarter: 2013Q4

REPORT INFORMATION
  Report Type: Spontaneous
  Country: US (occurrence: None)
  Receive Date: 20131010
  Receipt Date: 20131107
  Transmission Date: 20140711
  Serious: Yes (Hospitalization)
  Sender: FDA-Public Use
  Company Number: 2013SGN00569

PATIENT
  Age: 72 Year
  Sex: Female
  Weight: 77.6 kg

DRUGS (18)
  1. BRENTUXIMAB VEDOTIN [Suspect]
     Indication: DIFFUSE LARGE B-CELL LYMPHOMA
     Route: 042
     Dates: start: 20130912, end: 20130912
  2. RITUXIMAB [Suspect]
     Indication: DIFFUSE LARGE B-CELL LYMPHOMA
     Route: 042
     Dates: start: 20130911, end: 20130911
  3. CYCLOPHOSPHAMIDE [Suspect]
     Indication: DIFFUSE LARGE B-CELL LYMPHOMA
     Route: 042
     Dates: start: 20130912, end: 20130912
  4. DOXORUBICIN [Suspect]
     Indication: DIFFUSE LARGE B-CELL LYMPHOMA
     Route: 042
     Dates: start: 20130912, end: 20130912
  5. VINCRISTINE [Suspect]
     Indication: DIFFUSE LARGE B-CELL LYMPHOMA
     Route: 042
     Dates: start: 20130912, end: 20130912
  6. PREDNISONE [Suspect]
     Indication: DIFFUSE LARGE B-CELL LYMPHOMA
     Dosage: Q CYCLE
     Route: 048
     Dates: start: 20130911
  7. ASPIRIN (ASPIRIN) [Concomitant]
  8. CALTRATE (CALCIUM CARBONATE) [Concomitant]
  9. CARDIZEM (DILTIAZEM) [Concomitant]
  10. COMPAZINE (PROCHLORPERAZINE MALEATE) [Concomitant]
  11. LIPITOR (ATORVASTATIN CALCIUM) [Concomitant]
  12. TYLENOL (PARACETAMOL) [Concomitant]
  13. VITAMIN C (VITAMIN C) [Concomitant]
  14. VITAMIN D3 (VITAMIN D3) [Concomitant]
  15. ZYRTEC (CETIRIZINE HYDROCHLORIDE) [Concomitant]
  16. LOSARTAN (LOSARTAN) [Concomitant]
  17. OMEPRAZOLE (OMEPRAZOLE) [Concomitant]
  18. NEULASTA (PEGFILGRASTIM) [Concomitant]

REACTIONS (14)
  - Febrile neutropenia [None]
  - Ileus [None]
  - Bacteraemia [None]
  - Blood potassium decreased [None]
  - Haemoglobin decreased [None]
  - Platelet count decreased [None]
  - Ascites [None]
  - Gastrointestinal oedema [None]
  - Proctitis [None]
  - Small intestinal obstruction [None]
  - Sepsis [None]
  - Septic shock [None]
  - Neutropenic colitis [None]
  - Neutropenic sepsis [None]
